FAERS Safety Report 13757978 (Version 1)
Quarter: 2017Q3

REPORT INFORMATION
  Report Type: Spontaneous
  Country: US (occurrence: US)
  Receive Date: 20170717
  Receipt Date: 20170717
  Transmission Date: 20171127
  Serious: No
  Sender: FDA-Public Use
  Company Number: US-LEO PHARMA-303726

PATIENT
  Sex: Female

DRUGS (1)
  1. PROTOPIC [Suspect]
     Active Substance: TACROLIMUS
     Indication: PEMPHIGUS
     Route: 061

REACTIONS (3)
  - Application site pain [Unknown]
  - Application site erosion [Unknown]
  - Product use in unapproved indication [Unknown]
